FAERS Safety Report 9464759 (Version 2)
Quarter: 2013Q3

REPORT INFORMATION
  Report Type: Spontaneous
  Country: US (occurrence: US)
  Receive Date: 20130819
  Receipt Date: 20130823
  Transmission Date: 20140515
  Serious: No
  Sender: FDA-Public Use
  Company Number: US-PFIZER INC-2013236006

PATIENT
  Age: 62 Year
  Sex: Female
  Weight: 50.79 kg

DRUGS (2)
  1. FLECTOR [Suspect]
     Indication: PAIN
     Dosage: UNK
     Dates: start: 20130812, end: 20130813
  2. ALBUTEROL [Concomitant]
     Indication: ASTHMA
     Dosage: UNK, AS NEEDED

REACTIONS (7)
  - Headache [Unknown]
  - Burning sensation [Unknown]
  - Dyspnoea [Unknown]
  - Asthma [Unknown]
  - Somnolence [Unknown]
  - Malaise [Unknown]
  - Product odour abnormal [Unknown]
